FAERS Safety Report 7155791-6 (Version None)
Quarter: 2010Q4

REPORT INFORMATION
  Report Type: 
  Country: None (occurrence: None)
  Receive Date: 20101123
  Receipt Date: 20101123
  Transmission Date: 20110411
  Serious: No
  Sender: FDA-Public Use
  Company Number: 008570

PATIENT
  Sex: Female

DRUGS (5)
  1. CIMZIA [Suspect]
     Indication: CROHN'S DISEASE
     Dosage: (400 MG 1X/MONTH, 400 MG SUBCUTANEOUS)
     Route: 058
     Dates: start: 20090103
  2. CIMZIA [Suspect]
     Indication: CROHN'S DISEASE
     Dosage: (400 MG 1X/MONTH, 400 MG SUBCUTANEOUS)
     Route: 058
     Dates: start: 20100812
  3. CIMZIA [Suspect]
     Indication: CROHN'S DISEASE
     Dosage: (400 MG 1X/MONTH, 400 MG SUBCUTANEOUS)
     Route: 058
     Dates: start: 20101008
  4. CIMZIA [Suspect]
  5. CIMZIA [Suspect]

REACTIONS (6)
  - COUGH [None]
  - DEPRESSION [None]
  - DRUG INEFFECTIVE [None]
  - FAMILY STRESS [None]
  - FATIGUE [None]
  - LETHARGY [None]
